FAERS Safety Report 7301870-X (Version None)
Quarter: 2011Q1

REPORT INFORMATION
  Report Type: 
  Country: None (occurrence: None)
  Receive Date: 20110208
  Receipt Date: 20110121
  Transmission Date: 20110831
  Serious: Yes (Other)
  Sender: FDA-Public Use
  Company Number: 20110055

PATIENT
  Sex: Female

DRUGS (1)
  1. VENOFER [Suspect]
     Indication: ANAEMIA OF PREGNANCY
     Dosage: 300 MG, INTRAVENOUS
     Route: 042
     Dates: start: 20101107, end: 20101109

REACTIONS (2)
  - INJECTION SITE HAEMATOMA [None]
  - EXTRAVASATION [None]
